FAERS Safety Report 22250449 (Version 1)
Quarter: 2023Q2

REPORT INFORMATION
  Report Type: Spontaneous
  Country: DK (occurrence: None)
  Receive Date: 20230425
  Receipt Date: 20230425
  Transmission Date: 20230721
  Serious: Yes (Hospitalization, Other)
  Sender: FDA-Public Use
  Company Number: 2023A094367

PATIENT
  Age: 29 Year
  Sex: Male

DRUGS (1)
  1. EVUSHELD [Suspect]
     Active Substance: CILGAVIMAB\TIXAGEVIMAB
     Dosage: UNKNOWN
     Route: 030

REACTIONS (5)
  - Pulmonary fibrosis [Unknown]
  - Transfusion-related acute lung injury [Unknown]
  - Lung disorder [Unknown]
  - Drug ineffective [Unknown]
  - Off label use [Unknown]
